FAERS Safety Report 8187252-X (Version None)
Quarter: 2012Q1

REPORT INFORMATION
  Report Type: 
  Country: None (occurrence: None)
  Receive Date: 20120306
  Receipt Date: 20120228
  Transmission Date: 20120608
  Serious: Yes (Hospitalization, Disabling)
  Sender: FDA-Public Use
  Company Number: DE-ROCHE-769644

PATIENT
  Age: 52 Year
  Sex: Male
  Weight: 86 kg

DRUGS (1)
  1. LARIAM [Suspect]
     Indication: MALARIA
     Dosage: DAILY DOSE 1. TOTAL TABLETS ADMINISTERED: 245
     Route: 065
     Dates: start: 20090501, end: 20090601

REACTIONS (6)
  - SINUS ARREST [None]
  - HYPERTENSION [None]
  - SINOATRIAL BLOCK [None]
  - DIZZINESS [None]
  - NAUSEA [None]
  - CARDIAC PACEMAKER INSERTION [None]
